FAERS Safety Report 8966312 (Version 2)
Quarter: 2013Q1

REPORT INFORMATION
  Report Type: Spontaneous
  Country: IT (occurrence: IT)
  Receive Date: 20121217
  Receipt Date: 20130103
  Transmission Date: 20140127
  Serious: Yes (Hospitalization, Other)
  Sender: FDA-Public Use
  Company Number: IT-ELI_LILLY_AND_COMPANY-IT201210004229

PATIENT
  Age: 48 Year
  Sex: Male

DRUGS (5)
  1. ZYPADHERA [Suspect]
     Indication: BIPOLAR DISORDER
     Dosage: 300 MG, UNKNOWN
     Route: 030
     Dates: start: 20120912, end: 20120912
  2. ZYPADHERA [Suspect]
     Dosage: 405 MG, MONTHLY (1/M)
     Route: 030
     Dates: start: 20121012, end: 20121012
  3. LAXATIVE [Concomitant]
  4. ASPIRINETTA [Concomitant]
  5. CHLORDESMETHYLDIAZEPAM [Concomitant]

REACTIONS (4)
  - Cerebrovascular disorder [Unknown]
  - Sedation [Recovered/Resolved]
  - Dysarthria [Recovered/Resolved]
  - Tachycardia [Unknown]
